FAERS Safety Report 9753784 (Version 2)
Quarter: 2015Q3

REPORT INFORMATION
  Report Type: Spontaneous
  Country: US (occurrence: US)
  Receive Date: 20131213
  Receipt Date: 20150805
  Transmission Date: 20151125
  Serious: No
  Sender: FDA-Public Use
  Company Number: US-GILEAD-2010-0027008

PATIENT
  Age: 66 Year
  Sex: Male
  Weight: 73.6 kg

DRUGS (20)
  1. REVATIO [Suspect]
     Active Substance: SILDENAFIL CITRATE
  2. LIPITOR [Concomitant]
     Active Substance: ATORVASTATIN CALCIUM
  3. FLOMAX [Concomitant]
     Active Substance: TAMSULOSIN HYDROCHLORIDE
  4. SPIRIVA [Concomitant]
     Active Substance: TIOTROPIUM BROMIDE MONOHYDRATE
  5. LASIX [Concomitant]
     Active Substance: FUROSEMIDE
  6. METOPROLOL [Concomitant]
     Active Substance: METOPROLOL
  7. ALDACTONE [Concomitant]
     Active Substance: SPIRONOLACTONE
  8. DUONEB SOL [Concomitant]
  9. GLUCOSAMINE/CHONDROITIN [Concomitant]
  10. PREDNISONE. [Concomitant]
     Active Substance: PREDNISONE
  11. LETAIRIS [Suspect]
     Active Substance: AMBRISENTAN
     Indication: PULMONARY ARTERIAL HYPERTENSION
     Route: 048
     Dates: start: 20091221, end: 20100209
  12. MUCINEX [Concomitant]
     Active Substance: GUAIFENESIN
  13. FISH OIL [Concomitant]
     Active Substance: FISH OIL
  14. ASA [Concomitant]
     Active Substance: ASPIRIN
  15. FLONASE [Concomitant]
     Active Substance: FLUTICASONE PROPIONATE
  16. EYE VITAMIN [Concomitant]
  17. FOSAMAX [Concomitant]
     Active Substance: ALENDRONATE SODIUM
  18. MICARDIS [Concomitant]
     Active Substance: TELMISARTAN
  19. PROSCAR [Concomitant]
     Active Substance: FINASTERIDE
  20. ADVAIR DISKUS [Concomitant]
     Active Substance: FLUTICASONE PROPIONATE\SALMETEROL XINAFOATE

REACTIONS (3)
  - Dyspnoea [Unknown]
  - Oedema peripheral [Unknown]
  - Palpitations [Unknown]
